FAERS Safety Report 5882148-8 (Version None)
Quarter: 2008Q3

REPORT INFORMATION
  Report Type: 
  Country: None (occurrence: None)
  Receive Date: 20080912
  Receipt Date: 20080722
  Transmission Date: 20090109
  Serious: No
  Sender: FDA-Public Use
  Company Number: US-ABBOTT-08P-163-0465701-00

PATIENT
  Sex: Male
  Weight: 144.83 kg

DRUGS (4)
  1. HUMIRA [Suspect]
     Indication: SARCOIDOSIS
     Route: 058
     Dates: start: 20070901, end: 20080501
  2. HUMIRA [Suspect]
     Route: 058
     Dates: start: 20080610
  3. PREDNISONE TAB [Concomitant]
     Indication: SARCOIDOSIS
     Route: 048
     Dates: start: 20080715
  4. PAIN MEDICATION [Concomitant]

REACTIONS (3)
  - FATIGUE [None]
  - PAIN [None]
  - VENTRICULAR EXTRASYSTOLES [None]
